FAERS Safety Report 20921296 (Version 1)
Quarter: 2022Q2

REPORT INFORMATION
  Report Type: Spontaneous
  Country: US (occurrence: US)
  Receive Date: 20220606
  Receipt Date: 20220606
  Transmission Date: 20220720
  Serious: Yes (Hospitalization, Other)
  Sender: FDA-Public Use
  Company Number: US-BRISTOL-MYERS SQUIBB COMPANY-2022-019916

PATIENT
  Age: 70 Year
  Sex: Female

DRUGS (1)
  1. THALOMID [Suspect]
     Active Substance: THALIDOMIDE
     Indication: Plasma cell myeloma
     Dosage: DOSE: 100 MILLIGRAM, FREQ: DAILY
     Route: 048
     Dates: start: 20220305

REACTIONS (2)
  - Diarrhoea haemorrhagic [Unknown]
  - Large intestine infection [Unknown]

NARRATIVE: CASE EVENT DATE: 20220318
